FAERS Safety Report 15866411 (Version 1)
Quarter: 2019Q1

REPORT INFORMATION
  Report Type: Spontaneous
  Country: US (occurrence: US)
  Receive Date: 20190125
  Receipt Date: 20190125
  Transmission Date: 20190417
  Serious: No
  Sender: FDA-Public Use
  Company Number: US-PFIZER INC-2019027888

PATIENT
  Age: 30 Year
  Sex: Female

DRUGS (1)
  1. EUCRISA [Suspect]
     Active Substance: CRISABOROLE
     Dosage: UNK, 2X/DAY [APPLY TWICE A DAY TO AFFECTED SKIN]
     Route: 061
     Dates: start: 201811

REACTIONS (1)
  - Eyelid irritation [Unknown]
